FAERS Safety Report 4449875-0 (Version None)
Quarter: 2004Q3

REPORT INFORMATION
  Report Type: 
  Country: None (occurrence: None)
  Receive Date: 20040915
  Receipt Date: 20040909
  Transmission Date: 20050211
  Serious: Yes (Hospitalization)
  Sender: FDA-Public Use
  Company Number: US-MERCK-0409USA00688

PATIENT
  Age: 35 Year
  Sex: Male

DRUGS (1)
  1. VIOXX [Suspect]
     Indication: ARTHRALGIA
     Route: 048
     Dates: start: 20010101

REACTIONS (3)
  - DEEP VEIN THROMBOSIS [None]
  - HEPATIC FUNCTION ABNORMAL [None]
  - PROTEIN C DEFICIENCY [None]
